FAERS Safety Report 14472860 (Version 1)
Quarter: 2018Q1

REPORT INFORMATION
  Report Type: Spontaneous
  Country: GB (occurrence: GB)
  Receive Date: 20180201
  Receipt Date: 20180201
  Transmission Date: 20180509
  Serious: Yes (Death, Hospitalization)
  Sender: FDA-Public Use
  Company Number: GB-ROCHE-2032430

PATIENT
  Age: 71 Year
  Sex: Female

DRUGS (6)
  1. CLONAZEPAM. [Suspect]
     Active Substance: CLONAZEPAM
     Indication: GENERALISED TONIC-CLONIC SEIZURE
     Route: 065
  2. METHYLPREDNISOLONE. [Suspect]
     Active Substance: METHYLPREDNISOLONE
     Indication: GENERALISED TONIC-CLONIC SEIZURE
     Route: 065
  3. PROPOFOL. [Suspect]
     Active Substance: PROPOFOL
     Indication: GENERALISED TONIC-CLONIC SEIZURE
     Route: 065
  4. LEVETIRACETAM. [Suspect]
     Active Substance: LEVETIRACETAM
     Indication: GENERALISED TONIC-CLONIC SEIZURE
     Route: 065
  5. PHENYTOIN. [Suspect]
     Active Substance: PHENYTOIN
     Indication: GENERALISED TONIC-CLONIC SEIZURE
     Route: 042
  6. MIDAZOLAM [Suspect]
     Active Substance: MIDAZOLAM HYDROCHLORIDE
     Indication: GENERALISED TONIC-CLONIC SEIZURE
     Route: 065

REACTIONS (4)
  - Disease progression [Fatal]
  - Epileptic encephalopathy [Fatal]
  - Multiple organ dysfunction syndrome [Fatal]
  - Drug ineffective [Fatal]
